FAERS Safety Report 4424941-4 (Version None)
Quarter: 2004Q3

REPORT INFORMATION
  Report Type: 
  Country: None (occurrence: None)
  Receive Date: 20040809
  Receipt Date: 20040730
  Transmission Date: 20050211
  Serious: Yes (Hospitalization, Other)
  Sender: FDA-Public Use
  Company Number: KII-29004-0012687

PATIENT
  Age: 20 Year
  Sex: Female

DRUGS (6)
  1. OXYCONTIN [Suspect]
     Dosage: ORAL
     Route: 048
  2. HEROIN (DIAMORPHINE) [Suspect]
     Dosage: ORAL
     Route: 048
  3. AMFETAMIN (AMFETAMINE) [Suspect]
     Dosage: ORAL
     Route: 048
  4. GAMMA HYDROXYBUTYRATE [Suspect]
     Dosage: ORAL
     Route: 048
  5. COCAINE (COCAINE) [Suspect]
     Dosage: ORAL
     Route: 048
  6. BENZODIAZEPINE DERIVATIVES [Suspect]
     Dosage: ORAL
     Route: 048

REACTIONS (10)
  - BLOOD AMYLASE INCREASED [None]
  - BLOOD CHLORIDE INCREASED [None]
  - BLOOD CREATINE PHOSPHOKINASE INCREASED [None]
  - COMA [None]
  - DRUG SCREEN POSITIVE [None]
  - HYPERTHERMIA [None]
  - POLYSUBSTANCE ABUSE [None]
  - RENAL FAILURE [None]
  - STATUS EPILEPTICUS [None]
  - THERAPY NON-RESPONDER [None]
